FAERS Safety Report 4636817-8 (Version None)
Quarter: 2005Q2

REPORT INFORMATION
  Report Type: 
  Country: None (occurrence: None)
  Receive Date: 20050414
  Receipt Date: 20050404
  Transmission Date: 20051028
  Serious: Yes (Other)
  Sender: FDA-Public Use
  Company Number: 2005055009

PATIENT
  Age: 44 Year
  Sex: Male

DRUGS (2)
  1. CELEBREX [Suspect]
     Indication: ILL-DEFINED DISORDER
  2. ENALAPRIL MALEATE [Concomitant]

REACTIONS (2)
  - HIP ARTHROPLASTY [None]
  - PAIN [None]
